FAERS Safety Report 10878752 (Version 1)
Quarter: 2015Q1

REPORT INFORMATION
  Report Type: Spontaneous
  Country: US (occurrence: US)
  Receive Date: 20150302
  Receipt Date: 20150302
  Transmission Date: 20150721
  Serious: No
  Sender: FDA-Public Use
  Company Number: US-ABBVIE-05P-163-0772827-00

PATIENT
  Sex: Male
  Weight: 86.26 kg

DRUGS (3)
  1. ANDROGEL [Suspect]
     Active Substance: TESTOSTERONE
     Indication: ILL-DEFINED DISORDER
     Dosage: DAILY DOSE: 5 GRAM(S)
     Route: 062
     Dates: start: 2004
  2. ANDROGEL [Suspect]
     Active Substance: TESTOSTERONE
     Dosage: DAILY DOSE: 10 GRAM(S)
     Route: 062
  3. ANDROGEL [Concomitant]
     Active Substance: TESTOSTERONE
     Indication: PRODUCT USED FOR UNKNOWN INDICATION
     Dates: start: 201501

REACTIONS (2)
  - Blood testosterone decreased [Recovered/Resolved]
  - Drug ineffective [Not Recovered/Not Resolved]
